FAERS Safety Report 8228990-X (Version None)
Quarter: 2012Q1

REPORT INFORMATION
  Report Type: 
  Country: None (occurrence: None)
  Receive Date: 20120322
  Receipt Date: 20120313
  Transmission Date: 20120608
  Serious: Yes (Hospitalization, Other)
  Sender: FDA-Public Use
  Company Number: DE-ROCHE-1048846

PATIENT
  Age: 48 Year
  Sex: Male
  Weight: 132 kg

DRUGS (1)
  1. ACTEMRA [Suspect]
     Indication: RHEUMATOID ARTHRITIS
     Route: 042
     Dates: start: 20110609

REACTIONS (8)
  - ARTHRITIS INFECTIVE [None]
  - HUMERUS FRACTURE [None]
  - SPINAL DEFORMITY [None]
  - PULMONARY EMBOLISM [None]
  - JOINT DISLOCATION [None]
  - FOOT FRACTURE [None]
  - RADIUS FRACTURE [None]
  - CONTUSION [None]
